FAERS Safety Report 12124408 (Version 1)
Quarter: 2016Q1

REPORT INFORMATION
  Report Type: Spontaneous
  Country: DE (occurrence: DE)
  Receive Date: 20160229
  Receipt Date: 20160229
  Transmission Date: 20160526
  Serious: Yes (Congenital Anomaly)
  Sender: FDA-Public Use
  Company Number: DE-UCBSA-2016006690

PATIENT

DRUGS (5)
  1. LAMOTRIGIN [Concomitant]
     Active Substance: LAMOTRIGINE
     Indication: PRODUCT USED FOR UNKNOWN INDICATION
     Dosage: 25 MG PER DAY
     Route: 064
     Dates: start: 20150217, end: 20150224
  2. FOLIC [Concomitant]
     Indication: PROPHYLAXIS OF NEURAL TUBE DEFECT
     Dosage: UNK
     Route: 064
     Dates: start: 20150220, end: 20150602
  3. LEVETIRACETAM. [Suspect]
     Active Substance: LEVETIRACETAM
     Indication: EPILEPSY
     Dosage: UNK
     Route: 064
     Dates: start: 20150224, end: 2015
  4. CARBAMAZEPIN [Suspect]
     Active Substance: CARBAMAZEPINE
     Indication: EPILEPSY
     Dosage: 1200 MG, ONCE DAILY (QD)
     Route: 064
     Dates: start: 20150109, end: 20150602
  5. LEVETIRACETAM. [Suspect]
     Active Substance: LEVETIRACETAM
     Dosage: 4000 MG DAILY (INCREASING DOSE UP TO 4000 MG/D)
     Route: 064
     Dates: start: 2015, end: 20150602

REACTIONS (2)
  - Foetal exposure during pregnancy [Unknown]
  - Congenital hydrocephalus [Not Recovered/Not Resolved]

NARRATIVE: CASE EVENT DATE: 20150224
